FAERS Safety Report 12316331 (Version 2)
Quarter: 2016Q3

REPORT INFORMATION
  Report Type: Report from Study
  Country: GB (occurrence: GB)
  Receive Date: 20160429
  Receipt Date: 20160701
  Transmission Date: 20161109
  Serious: Yes (Hospitalization)
  Sender: FDA-Public Use
  Company Number: GB-BRISTOL-MYERS SQUIBB COMPANY-BMS-2016-032515

PATIENT
  Age: 69 Year
  Sex: Male
  Weight: 53.6 kg

DRUGS (7)
  1. NIVOLUMAB [Suspect]
     Active Substance: NIVOLUMAB
     Indication: NON-SMALL CELL LUNG CANCER
     Dosage: 160 MG, UNK
     Route: 065
     Dates: start: 20160120, end: 20160120
  2. NIVOLUMAB [Suspect]
     Active Substance: NIVOLUMAB
     Dosage: 155 MG, UNK
     Route: 065
     Dates: start: 20160203, end: 20160203
  3. NIVOLUMAB [Suspect]
     Active Substance: NIVOLUMAB
     Dosage: 155 UNK, UNK
     Route: 065
     Dates: start: 20160406, end: 20160406
  4. NIVOLUMAB [Suspect]
     Active Substance: NIVOLUMAB
     Dosage: 155 UNK, UNK
     Route: 065
     Dates: start: 20160420, end: 20160420
  5. NIVOLUMAB [Suspect]
     Active Substance: NIVOLUMAB
     Dosage: 155 MG, UNK
     Route: 065
     Dates: start: 20160302, end: 20160302
  6. NIVOLUMAB [Suspect]
     Active Substance: NIVOLUMAB
     Dosage: 155 UNK, UNK
     Route: 065
     Dates: start: 20160323, end: 20160323
  7. NIVOLUMAB [Suspect]
     Active Substance: NIVOLUMAB
     Dosage: 150 MG, UNK
     Route: 065
     Dates: start: 20160217, end: 20160217

REACTIONS (1)
  - Abdominal pain [Unknown]

NARRATIVE: CASE EVENT DATE: 20160421
